FAERS Safety Report 7041042-X (Version None)
Quarter: 2010Q4

REPORT INFORMATION
  Report Type: 
  Country: None (occurrence: None)
  Receive Date: 20101013
  Receipt Date: 20101004
  Transmission Date: 20110411
  Serious: Yes (Hospitalization)
  Sender: FDA-Public Use
  Company Number: FR-ASTRAZENECA-2010SE47308

PATIENT
  Age: 17038 Day
  Sex: Female

DRUGS (4)
  1. ENTOCORT EC [Suspect]
     Indication: CROHN'S DISEASE
     Route: 048
     Dates: start: 20100720, end: 20100801
  2. PENTASA [Suspect]
     Indication: CROHN'S DISEASE
     Route: 048
     Dates: start: 20050101, end: 20100730
  3. ORAL CONTRACEPTION [Concomitant]
  4. INTRAUTERINE CONTRACEPTIVE DEVICE [Concomitant]

REACTIONS (1)
  - CYTOLYTIC HEPATITIS [None]
